FAERS Safety Report 17175567 (Version 2)
Quarter: 2020Q2

REPORT INFORMATION
  Report Type: Report from Study
  Country: US (occurrence: US)
  Receive Date: 20191219
  Receipt Date: 20200514
  Transmission Date: 20200713
  Serious: Yes (Hospitalization)
  Sender: FDA-Public Use
  Company Number: NVSC2019US020798

PATIENT
  Age: 16 Year
  Sex: Male

DRUGS (7)
  1. INC424A [Suspect]
     Active Substance: RUXOLITINIB
     Indication: LYMPHOCYTIC LEUKAEMIA
     Dosage: 85 MG
     Route: 048
     Dates: start: 20190918
  2. THIOGUANINE [Suspect]
     Active Substance: THIOGUANINE
     Indication: ACUTE LYMPHOCYTIC LEUKAEMIA
     Dosage: 100 MG (DI DAY 29-42)
     Route: 048
     Dates: start: 20190918
  3. METHOTREXATE. [Suspect]
     Active Substance: METHOTREXATE
     Indication: ACUTE LYMPHOCYTIC LEUKAEMIA
     Dosage: 15 MG (DI DAY 29,36)
     Route: 037
     Dates: start: 20190918, end: 20190926
  4. VINCRISTINE [Suspect]
     Active Substance: VINCRISTINE
     Indication: ACUTE LYMPHOCYTIC LEUKAEMIA
     Dosage: 2 MG (DI DAY 43,50)
     Route: 042
     Dates: start: 20191003, end: 20191010
  5. PEGASPARGASE [Suspect]
     Active Substance: PEGASPARGASE
     Indication: ACUTE LYMPHOCYTIC LEUKAEMIA
     Dosage: 4125 IU (DELAYED INTENSIFICATION DAY 43)
     Route: 042
     Dates: start: 20191003, end: 20191003
  6. CYCLOPHOSPHAMIDE. [Suspect]
     Active Substance: CYCLOPHOSPHAMIDE
     Indication: ACUTE LYMPHOCYTIC LEUKAEMIA
     Dosage: 1692 MG (DI DAY 29)
     Route: 042
     Dates: start: 20190918, end: 20190918
  7. CYTARABINE. [Suspect]
     Active Substance: CYTARABINE
     Indication: ACUTE LYMPHOCYTIC LEUKAEMIA
     Dosage: 127 MG(DI DAY 29-32, 36-39)
     Route: 042
     Dates: start: 20190918, end: 20190929

REACTIONS (1)
  - Sepsis [Recovered/Resolved]

NARRATIVE: CASE EVENT DATE: 20191019
